FAERS Safety Report 6413399-1 (Version None)
Quarter: 2009Q4

REPORT INFORMATION
  Report Type: 
  Country: None (occurrence: None)
  Receive Date: 20091026
  Receipt Date: 20091026
  Transmission Date: 20100525
  Serious: Yes (Hospitalization, Other)
  Sender: FDA-Public Use
  Company Number: US-PFIZER INC-2006129005

PATIENT
  Sex: Female
  Weight: 54.4 kg

DRUGS (12)
  1. LIPITOR [Suspect]
     Indication: BLOOD TRIGLYCERIDES INCREASED
     Dates: start: 19970101
  2. LIPITOR [Suspect]
     Indication: HYPERLIPIDAEMIA
  3. GLUCOTROL [Suspect]
  4. VITAMIN E [Suspect]
     Indication: LIPIDS INCREASED
     Dosage: UNK
     Dates: end: 20090501
  5. CLONIDINE [Concomitant]
     Dates: start: 19960101
  6. PREMARIN [Concomitant]
     Dates: start: 19850101
  7. VITAMIN D [Concomitant]
  8. VITAMIN B COMPLEX CAP [Concomitant]
  9. CALCIUM [Concomitant]
  10. LEVOTHYROXINE SODIUM [Concomitant]
     Indication: HYPOTHYROIDISM
     Dates: start: 20060101
  11. METFORMIN HCL [Concomitant]
     Indication: DIABETES MELLITUS
     Dates: start: 20060101
  12. RANITIDINE [Concomitant]
     Dates: start: 20040101

REACTIONS (19)
  - ALANINE AMINOTRANSFERASE INCREASED [None]
  - ANXIETY [None]
  - ASPARTATE AMINOTRANSFERASE INCREASED [None]
  - BLOOD BILIRUBIN INCREASED [None]
  - BLOOD TRIGLYCERIDES INCREASED [None]
  - BODY HEIGHT DECREASED [None]
  - DIABETES MELLITUS [None]
  - DIARRHOEA [None]
  - DISCOMFORT [None]
  - GASTROINTESTINAL DISORDER [None]
  - HERNIA [None]
  - INFLUENZA [None]
  - JAUNDICE [None]
  - MALAISE [None]
  - NAUSEA [None]
  - PANCREATITIS [None]
  - PEPTIC ULCER [None]
  - SPINAL DISORDER [None]
  - VISION BLURRED [None]
